FAERS Safety Report 4355625-9 (Version None)
Quarter: 2004Q2

REPORT INFORMATION
  Report Type: 
  Country: None (occurrence: None)
  Receive Date: 20040505
  Receipt Date: 20040422
  Transmission Date: 20050107
  Serious: Yes (Other)
  Sender: FDA-Public Use
  Company Number: PERI00204001189

PATIENT
  Age: 80 Year
  Sex: Female
  Weight: 72 kg

DRUGS (4)
  1. COVERSYL (PERINDOPRIL) [Suspect]
     Indication: HYPERTENSION
     Dosage: 2 MG QD PO
     Route: 048
     Dates: start: 20040322, end: 20040326
  2. ASPIRIN [Concomitant]
  3. PRAVASTATIN [Concomitant]
  4. KALTEN (KALTEN) [Concomitant]

REACTIONS (2)
  - ATRIAL FIBRILLATION [None]
  - PALPITATIONS [None]
